FAERS Safety Report 5368003-0 (Version None)
Quarter: 2007Q2

REPORT INFORMATION
  Report Type: 
  Country: None (occurrence: None)
  Receive Date: 20070622
  Receipt Date: 20070611
  Transmission Date: 20071010
  Serious: Yes (Other)
  Sender: FDA-Public Use
  Company Number: GB-PFIZER INC-2007048002

PATIENT
  Age: 94 Year
  Sex: Male
  Weight: 85 kg

DRUGS (4)
  1. EPLERENONE [Suspect]
     Indication: CARDIAC FAILURE
     Route: 048
  2. CANDESARTAN [Concomitant]
  3. FERROUS SULFATE TAB [Concomitant]
  4. FUROSEMIDE [Concomitant]

REACTIONS (2)
  - GOUT [None]
  - JOINT SWELLING [None]
